FAERS Safety Report 6034243-0 (Version None)
Quarter: 2009Q1

REPORT INFORMATION
  Report Type: 
  Country: None (occurrence: None)
  Receive Date: 20090112
  Receipt Date: 20090106
  Transmission Date: 20090719
  Serious: Yes (Other)
  Sender: FDA-Public Use
  Company Number: FR-AMGEN-US327673

PATIENT
  Age: 60 Year
  Sex: Female

DRUGS (2)
  1. ENBREL [Suspect]
     Indication: RHEUMATOID ARTHRITIS
     Dosage: LYOPHILIZED/50 MG 1 TIME PER WEEK
     Route: 058
     Dates: start: 20050101
  2. ENBREL [Suspect]
     Route: 058

REACTIONS (2)
  - CUTANEOUS VASCULITIS [None]
  - RAYNAUD'S PHENOMENON [None]
